FAERS Safety Report 13244306 (Version 1)
Quarter: 2017Q1

REPORT INFORMATION
  Report Type: Spontaneous
  Country: US (occurrence: US)
  Receive Date: 20170217
  Receipt Date: 20170217
  Transmission Date: 20170428
  Serious: No
  Sender: FDA-Public Use
  Company Number: None

PATIENT
  Sex: 0

DRUGS (2)
  1. DIAZEPAM. [Suspect]
     Active Substance: DIAZEPAM
     Route: 048
  2. CLONIDINE. [Suspect]
     Active Substance: CLONIDINE

REACTIONS (5)
  - Wrong drug administered [None]
  - Transcription medication error [None]
  - Drug dispensing error [None]
  - Irritability [None]
  - Drug dispensed to wrong patient [None]
